FAERS Safety Report 7526205-9 (Version None)
Quarter: 2011Q2

REPORT INFORMATION
  Report Type: 
  Country: None (occurrence: None)
  Receive Date: 20110606
  Receipt Date: 20101201
  Transmission Date: 20111010
  Serious: No
  Sender: FDA-Public Use
  Company Number: US-BRISTOL-MYERS SQUIBB COMPANY-15416878

PATIENT
  Sex: Male

DRUGS (2)
  1. SUSTIVA [Suspect]
     Dosage: MED THRO NG TUBE FOR THE PAST 3 MONTHS,RECEIVING THIS REGIMEN FOR MANY YEARS
     Route: 050
  2. VIREAD [Concomitant]

REACTIONS (1)
  - GASTROINTESTINAL TUBE INSERTION [None]
